FAERS Safety Report 4555838-7 (Version None)
Quarter: 2005Q1

REPORT INFORMATION
  Report Type: 
  Country: None (occurrence: None)
  Receive Date: 20050111
  Receipt Date: 20041005
  Transmission Date: 20050727
  Serious: No
  Sender: FDA-Public Use
  Company Number: 2004S1000233

PATIENT
  Sex: Female

DRUGS (3)
  1. CUBICIN [Suspect]
     Indication: PATHOGEN RESISTANCE
     Dosage: 4 MG/KG;Q48H;IV
     Route: 042
  2. CUBICIN [Suspect]
     Indication: PERITONITIS
     Dosage: 4 MG/KG;Q48H;IV
     Route: 042
  3. LEVOTHYROXINE [Concomitant]

REACTIONS (2)
  - BLOOD CREATINE PHOSPHOKINASE INCREASED [None]
  - MYALGIA [None]
